FAERS Safety Report 6371129-6 (Version None)
Quarter: 2009Q3

REPORT INFORMATION
  Report Type: 
  Country: None (occurrence: None)
  Receive Date: 20090923
  Receipt Date: 20090917
  Transmission Date: 20100115
  Serious: Yes (Disabling, Other)
  Sender: FDA-Public Use
  Company Number: US-MERCK-0812USA02132

PATIENT
  Age: 67 Year
  Sex: Female
  Weight: 58 kg

DRUGS (5)
  1. FOSAMAX [Suspect]
     Indication: OSTEOPOROSIS
     Route: 048
     Dates: start: 20030101
  2. FOSAMAX [Suspect]
     Route: 048
     Dates: start: 19960101
  3. FOSAMAX [Suspect]
     Route: 048
     Dates: start: 20030101, end: 20070701
  4. CALCIUM (UNSPECIFIED) [Concomitant]
     Indication: OSTEOPOROSIS
     Route: 065
  5. VITAMIN D (UNSPECIFIED) [Concomitant]
     Indication: OSTEOPOROSIS
     Route: 065

REACTIONS (28)
  - COMPRESSION FRACTURE [None]
  - DENTAL CARIES [None]
  - DISUSE SYNDROME [None]
  - DIVERTICULUM [None]
  - DYSPNOEA [None]
  - FATIGUE [None]
  - FOOD ALLERGY [None]
  - FOOT FRACTURE [None]
  - GASTRITIS [None]
  - GASTROOESOPHAGEAL REFLUX DISEASE [None]
  - INFECTION [None]
  - INFLAMMATION [None]
  - INSOMNIA [None]
  - JAW DISORDER [None]
  - JOINT SPRAIN [None]
  - LEUKOCYTOSIS [None]
  - OSTEITIS [None]
  - OSTEOARTHRITIS [None]
  - OSTEOMYELITIS [None]
  - OSTEONECROSIS [None]
  - OSTEOPENIA [None]
  - PEPTIC ULCER [None]
  - PYREXIA [None]
  - RASH [None]
  - RESORPTION BONE INCREASED [None]
  - SCIATICA [None]
  - TERATOMA BENIGN [None]
  - TOOTH DISORDER [None]
